FAERS Safety Report 16468508 (Version 1)
Quarter: 2019Q2

REPORT INFORMATION
  Report Type: Spontaneous
  Country: US (occurrence: US)
  Receive Date: 20190624
  Receipt Date: 20190624
  Transmission Date: 20190711
  Serious: Yes (Death, Other)
  Sender: FDA-Public Use
  Company Number: US-AMGEN-USASP2019097500

PATIENT
  Age: 63 Year
  Sex: Male

DRUGS (1)
  1. PARSABIV [Suspect]
     Active Substance: ETELCALCETIDE HYDROCHLORIDE
     Indication: PRODUCT USED FOR UNKNOWN INDICATION
     Dosage: 7.5 MILLIGRAM
     Route: 065
     Dates: start: 201904

REACTIONS (3)
  - Cardiomyopathy [Fatal]
  - Cardiac failure congestive [Fatal]
  - Blood calcium increased [Recovered/Resolved]

NARRATIVE: CASE EVENT DATE: 201905
